FAERS Safety Report 15582484 (Version 2)
Quarter: 2018Q4

REPORT INFORMATION
  Report Type: Report from Study
  Country: US (occurrence: US)
  Receive Date: 20181103
  Receipt Date: 20181116
  Transmission Date: 20190205
  Serious: Yes (Hospitalization, Other)
  Sender: FDA-Public Use
  Company Number: PHEH2018US046388

PATIENT
  Sex: Female

DRUGS (1)
  1. ENTRESTO [Suspect]
     Active Substance: SACUBITRIL\VALSARTAN
     Indication: PRODUCT USED FOR UNKNOWN INDICATION
     Dosage: 1 DF (SACUBITRIL 49MG AND VALSARTAN 51MG), BID
     Route: 048

REACTIONS (5)
  - Eye contusion [Unknown]
  - Fall [Unknown]
  - Dehydration [Unknown]
  - Fatigue [Recovering/Resolving]
  - Dizziness [Unknown]
